FAERS Safety Report 21950490 (Version 1)
Quarter: 2023Q1

REPORT INFORMATION
  Report Type: Spontaneous
  Country: US (occurrence: US)
  Receive Date: 20230203
  Receipt Date: 20230203
  Transmission Date: 20230417
  Serious: Yes (Other)
  Sender: FDA-Public Use
  Company Number: US-GLAXOSMITHKLINE-US2023012719

PATIENT
  Age: 62 Year
  Sex: Female

DRUGS (3)
  1. BENLYSTA [Suspect]
     Active Substance: BELIMUMAB
     Indication: Systemic lupus erythematosus
     Dosage: INFUSION
     Dates: start: 20230119, end: 20230119
  2. CELLCEPT [Concomitant]
     Active Substance: MYCOPHENOLATE MOFETIL
     Indication: Systemic lupus erythematosus
     Dosage: UNK
     Dates: start: 20190501
  3. NADOLOL [Concomitant]
     Active Substance: NADOLOL
     Indication: Electrocardiogram QT prolonged
     Dosage: UNK
     Dates: start: 20220701

REACTIONS (9)
  - Anaphylactic shock [Recovered/Resolved with Sequelae]
  - Pruritus [Unknown]
  - Urticaria [Unknown]
  - Vomiting [Unknown]
  - Condition aggravated [Unknown]
  - Chest pain [Unknown]
  - Feeling abnormal [Unknown]
  - Blood test abnormal [Unknown]
  - Cardiac disorder [Unknown]

NARRATIVE: CASE EVENT DATE: 20230119
